FAERS Safety Report 7417783-9 (Version None)
Quarter: 2011Q2

REPORT INFORMATION
  Report Type: 
  Country: None (occurrence: None)
  Receive Date: 20110415
  Receipt Date: 20110404
  Transmission Date: 20111010
  Serious: Yes (Hospitalization)
  Sender: FDA-Public Use
  Company Number: FR-BAYER-2011-029516

PATIENT
  Age: 29 Year
  Sex: Female

DRUGS (2)
  1. DIANE [Suspect]
     Indication: PRODUCT USED FOR UNKNOWN INDICATION
  2. JASMINE [Suspect]
     Indication: ORAL CONTRACEPTION
     Dosage: UNK
     Route: 048
     Dates: start: 20110301

REACTIONS (4)
  - HEREDITARY ANGIOEDEMA [None]
  - ANGIOEDEMA [None]
  - ABDOMINAL PAIN [None]
  - SUBILEUS [None]
